FAERS Safety Report 14730629 (Version 1)
Quarter: 2018Q2

REPORT INFORMATION
  Report Type: Spontaneous
  Country: GB (occurrence: GB)
  Receive Date: 20180406
  Receipt Date: 20180406
  Transmission Date: 20180711
  Serious: Yes (Life-Threatening, Hospitalization)
  Sender: FDA-Public Use
  Company Number: GB-NOVOPROD-593576

PATIENT
  Age: 63 Year
  Sex: Female

DRUGS (3)
  1. LIRAGLUTIDE [Suspect]
     Active Substance: LIRAGLUTIDE
     Indication: DIABETES MELLITUS
     Dosage: 1.8 MG
     Route: 058
     Dates: start: 20180226
  2. METFORMIN [Concomitant]
     Active Substance: METFORMIN HYDROCHLORIDE
     Indication: PRODUCT USED FOR UNKNOWN INDICATION
     Dosage: 850 MG
     Route: 048
     Dates: start: 20180226
  3. GLICLAZIDE [Concomitant]
     Active Substance: GLICLAZIDE
     Indication: DIABETES MELLITUS
     Dosage: 80 MG
     Route: 048
     Dates: start: 20180302

REACTIONS (2)
  - Jaundice [Not Recovered/Not Resolved]
  - Pancreatic mass [Not Recovered/Not Resolved]

NARRATIVE: CASE EVENT DATE: 20180226
